FAERS Safety Report 7617445-9 (Version None)
Quarter: 2011Q3

REPORT INFORMATION
  Report Type: 
  Country: None (occurrence: None)
  Receive Date: 20110718
  Receipt Date: 20110714
  Transmission Date: 20111222
  Serious: No
  Sender: FDA-Public Use
  Company Number: US-PFIZER INC-2011160208

PATIENT
  Sex: Male
  Weight: 86.2 kg

DRUGS (3)
  1. PRISTIQ [Suspect]
     Indication: DEPRESSION
     Dosage: 50 MG, 1X/DAY
     Route: 048
     Dates: start: 20110714, end: 20110714
  2. PRISTIQ [Suspect]
     Indication: ANXIETY
  3. ADAPIN [Concomitant]
     Indication: PANIC ATTACK
     Dosage: UNK

REACTIONS (3)
  - MALAISE [None]
  - RESTLESSNESS [None]
  - SOMNOLENCE [None]
